FAERS Safety Report 20921663 (Version 2)
Quarter: 2022Q2

REPORT INFORMATION
  Report Type: Spontaneous
  Country: CA (occurrence: CA)
  Receive Date: 20220606
  Receipt Date: 20220608
  Transmission Date: 20220720
  Serious: Yes (Hospitalization, Other)
  Sender: FDA-Public Use
  Company Number: CA-BoehringerIngelheim-2022-BI-174742

PATIENT
  Age: 57 Year
  Sex: Male

DRUGS (1)
  1. EMPAGLIFLOZIN [Suspect]
     Active Substance: EMPAGLIFLOZIN
     Indication: Diabetes mellitus
     Route: 065
     Dates: start: 20220510, end: 202205

REACTIONS (7)
  - Hypoxia [Unknown]
  - Lung opacity [Unknown]
  - Lymphadenopathy [Unknown]
  - Diabetic ketoacidosis [Unknown]
  - Cardiac failure congestive [Unknown]
  - Traumatic lung injury [Unknown]
  - Drug hypersensitivity [Unknown]

NARRATIVE: CASE EVENT DATE: 20220501
